FAERS Safety Report 10501837 (Version 2)
Quarter: 2014Q4

REPORT INFORMATION
  Report Type: Spontaneous
  Country: US (occurrence: US)
  Receive Date: 20141007
  Receipt Date: 20141112
  Transmission Date: 20150528
  Serious: No
  Sender: FDA-Public Use
  Company Number: US-PFIZER INC-2014272617

PATIENT
  Age: 78 Year
  Sex: Female
  Weight: 74 kg

DRUGS (5)
  1. GABAPENTIN. [Suspect]
     Active Substance: GABAPENTIN
     Dosage: 600 MG, DAILY (200MG 3 TIMES DAILY)
     Dates: start: 201303
  2. GABAPENTIN. [Suspect]
     Active Substance: GABAPENTIN
     Dosage: 60 MG, UNK
  3. GABAPENTIN. [Suspect]
     Active Substance: GABAPENTIN
     Dosage: 1600 MG, DAILY
  4. GABAPENTIN. [Suspect]
     Active Substance: GABAPENTIN
     Indication: PRURITUS
     Dosage: HALF OF 600 OR 800 MG TABLET
  5. ACTONEL [Concomitant]
     Active Substance: RISEDRONATE SODIUM
     Dosage: 35 MG, WEEKLY (1 TIME WEEKLY)
     Dates: start: 2012

REACTIONS (12)
  - Urinary incontinence [Unknown]
  - Arthralgia [Not Recovered/Not Resolved]
  - Weight increased [Not Recovered/Not Resolved]
  - Myalgia [Not Recovered/Not Resolved]
  - Pain [Not Recovered/Not Resolved]
  - Hair growth abnormal [Unknown]
  - Swelling [Not Recovered/Not Resolved]
  - Insomnia [Not Recovered/Not Resolved]
  - Influenza like illness [Not Recovered/Not Resolved]
  - Irritability [Not Recovered/Not Resolved]
  - Faecal incontinence [Unknown]
  - Muscular weakness [Unknown]

NARRATIVE: CASE EVENT DATE: 2013
